FAERS Safety Report 9920214 (Version 1)
Quarter: 2014Q1

REPORT INFORMATION
  Report Type: Spontaneous
  Country: DE (occurrence: DE)
  Receive Date: 20140224
  Receipt Date: 20140224
  Transmission Date: 20141002
  Serious: Yes (Congenital Anomaly)
  Sender: FDA-Public Use
  Company Number: GXKR2014DE000979

PATIENT
  Age: 1 Day
  Sex: Female
  Weight: 4.25 kg

DRUGS (2)
  1. METHOTREXATE [Suspect]
     Indication: PSORIASIS
     Dosage: 15 [MG/WK (FATHER) ]
     Route: 065
     Dates: start: 20120910, end: 20130617
  2. FOLSAEURE STADA [Concomitant]
     Indication: PROPHYLAXIS OF NEURAL TUBE DEFECT
     Dosage: 5 [MG/D (MOTHER) ] FROM 5. - 40. GESTATIONAL WEEK
     Route: 064
     Dates: end: 20130617

REACTIONS (2)
  - Deafness congenital [Not Recovered/Not Resolved]
  - Large for dates baby [Unknown]
